FAERS Safety Report 24707093 (Version 1)
Quarter: 2024Q4

REPORT INFORMATION
  Report Type: Spontaneous
  Country: NL (occurrence: NL)
  Receive Date: 20241206
  Receipt Date: 20241206
  Transmission Date: 20250114
  Serious: Yes (Hospitalization, Other)
  Sender: VIIV
  Company Number: None

PATIENT

DRUGS (9)
  1. TIVICAY [Suspect]
     Active Substance: DOLUTEGRAVIR SODIUM
     Indication: HIV infection
     Dosage: 50 MG, BID (1 PIECE 2X PER DAY)
     Route: 048
     Dates: start: 20240717
  2. ISONIAZID\RIFAMPIN [Suspect]
     Active Substance: ISONIAZID\RIFAMPIN
     Indication: Tuberculosis
     Dosage: 2 DF, QD (1X PER DAY 2 PIECES) (300/150MG)
     Route: 048
     Dates: start: 20240627, end: 20240808
  3. MYAMBUTOL [Suspect]
     Active Substance: ETHAMBUTOL HYDROCHLORIDE
     Indication: Tuberculosis
     Dosage: 1200 MG, QD (1X PER DAY 3 PIECES)
     Route: 048
     Dates: start: 20240627, end: 20240808
  4. PYRAZINAMIDE [Suspect]
     Active Substance: PYRAZINAMIDE
     Indication: Tuberculosis
     Dosage: 2 G, QD (1X PER DAY 4 PIECES)
     Route: 048
     Dates: start: 20240627, end: 20240808
  5. TRUVADA [Suspect]
     Active Substance: EMTRICITABINE\TENOFOVIR DISOPROXIL FUMARATE
     Indication: HIV infection
     Dosage: 1 DF, QOD (200/245MG) (1 PIECE EVERY OTHER DAY)
     Route: 048
     Dates: start: 20240717
  6. FAMOTIDINE [Concomitant]
     Active Substance: FAMOTIDINE
     Indication: Product used for unknown indication
     Dosage: 20 MG
     Route: 048
  7. MOVICOLON [Concomitant]
     Active Substance: POLYETHYLENE GLYCOL 3350\POTASSIUM CHLORIDE\SODIUM BICARBONATE\SODIUM CHLORIDE
     Indication: Product used for unknown indication
     Dosage: UNK (POWDER FOR DRINK)
     Route: 048
  8. NADROPARIN [Concomitant]
     Active Substance: NADROPARIN
     Indication: Product used for unknown indication
     Dosage: UNK (INJECTION SOLUTION, 9500 IU/ML)
     Route: 065
  9. PANADOL ARTROSE [Concomitant]
     Indication: Product used for unknown indication
     Dosage: 1000 MG
     Route: 048

REACTIONS (1)
  - Acute kidney injury [Unknown]
